FAERS Safety Report 7247023-5 (Version None)
Quarter: 2011Q1

REPORT INFORMATION
  Report Type: 
  Country: None (occurrence: None)
  Receive Date: 20110127
  Receipt Date: 20110124
  Transmission Date: 20110831
  Serious: Yes (Death, Life-Threatening)
  Sender: FDA-Public Use
  Company Number: DE-JNJFOC-20090600776

PATIENT
  Sex: Male

DRUGS (3)
  1. HEPARIN [Concomitant]
     Indication: PRODUCT USED FOR UNKNOWN INDICATION
  2. ASPIRIN [Concomitant]
     Indication: PRODUCT USED FOR UNKNOWN INDICATION
  3. REOPRO [Suspect]
     Indication: ACUTE MYOCARDIAL INFARCTION
     Route: 022

REACTIONS (5)
  - CARDIAC TAMPONADE [None]
  - CORONARY ARTERY PERFORATION [None]
  - VENTRICULAR TACHYCARDIA [None]
  - ARTERIAL HAEMORRHAGE [None]
  - INCORRECT ROUTE OF DRUG ADMINISTRATION [None]
